FAERS Safety Report 11219123 (Version 1)
Quarter: 2015Q2

REPORT INFORMATION
  Report Type: Report from Study
  Country: US (occurrence: US)
  Receive Date: 20150625
  Receipt Date: 20150625
  Transmission Date: 20150821
  Serious: No
  Sender: FDA-Public Use
  Company Number: US-CELGENEUS-USA-2015065267

PATIENT

DRUGS (3)
  1. SEVREDOL [Concomitant]
     Active Substance: MORPHINE
     Indication: BREAKTHROUGH PAIN
     Route: 065
  2. MORPHINE SULFATE/NALTREXONE HYDROCHLORIDE [Concomitant]
     Active Substance: MORPHINE SULFATE\NALTREXONE HYDROCHLORIDE
     Indication: PRODUCT USED FOR UNKNOWN INDICATION
     Route: 065
  3. REVLIMID [Suspect]
     Active Substance: LENALIDOMIDE
     Indication: PLASMA CELL MYELOMA
     Route: 048

REACTIONS (8)
  - Light chain analysis abnormal [Unknown]
  - Tachyphrenia [Unknown]
  - Panic reaction [Unknown]
  - Asthenia [Recovering/Resolving]
  - Insomnia [Unknown]
  - Pain [Unknown]
  - Back pain [Unknown]
  - Plasma cell myeloma [Unknown]
